FAERS Safety Report 4529975-7 (Version None)
Quarter: 2004Q4

REPORT INFORMATION
  Report Type: 
  Country: None (occurrence: None)
  Receive Date: 20041217
  Receipt Date: 20041209
  Transmission Date: 20050328
  Serious: Yes (Death, Other)
  Sender: FDA-Public Use
  Company Number: 200413827JP

PATIENT
  Age: 77 Year
  Sex: Male

DRUGS (3)
  1. TAXOTERE [Suspect]
     Indication: PROSTATE CANCER
     Route: 041
     Dates: start: 20040501
  2. CISPLATIN [Suspect]
     Indication: PROSTATE CANCER
     Route: 041
     Dates: start: 20040601
  3. ESTRACYT [Suspect]
     Indication: PROSTATE CANCER
     Dates: start: 20040601

REACTIONS (3)
  - ILEUS [None]
  - INTESTINAL HAEMORRHAGE [None]
  - SHOCK [None]
